FAERS Safety Report 11051103 (Version 1)
Quarter: 2015Q2

REPORT INFORMATION
  Report Type: Spontaneous
  Country: BR (occurrence: BR)
  Receive Date: 20150421
  Receipt Date: 20150421
  Transmission Date: 20150821
  Serious: Yes (Other)
  Sender: FDA-Public Use
  Company Number: BR-SA-2014SA151825

PATIENT
  Age: 32 Year
  Sex: Female
  Weight: 57 kg

DRUGS (4)
  1. CLEXANE [Suspect]
     Active Substance: ENOXAPARIN SODIUM
     Indication: THROMBOSIS
     Dosage: DOSE= 1 SYRINGE DAILY ROUTE = ON THE SIDE OF THE ABDOMEN
     Dates: start: 201408, end: 201503
  2. NORIPURUM FOLICO [Concomitant]
     Indication: BLOOD DISORDER
     Route: 048
     Dates: start: 201406
  3. DEPURA [Concomitant]
     Active Substance: CHOLECALCIFEROL
     Indication: VITAMIN D DEFICIENCY
     Route: 048
     Dates: start: 201406
  4. UTROGESTAN [Concomitant]
     Active Substance: PROGESTERONE
     Indication: PROPHYLAXIS

REACTIONS (3)
  - Blood pressure fluctuation [Unknown]
  - Exposure during pregnancy [Unknown]
  - Syncope [Unknown]

NARRATIVE: CASE EVENT DATE: 201408
